FAERS Safety Report 5430519-6 (Version None)
Quarter: 2007Q3

REPORT INFORMATION
  Report Type: 
  Country: None (occurrence: None)
  Receive Date: 20070830
  Receipt Date: 20070823
  Transmission Date: 20080115
  Serious: Yes (Hospitalization)
  Sender: FDA-Public Use
  Company Number: FR-ELI_LILLY_AND_COMPANY-FR200708004980

PATIENT
  Age: 74 Year
  Sex: Female

DRUGS (8)
  1. FORTEO [Suspect]
     Indication: OSTEOPOROSIS
     Dosage: 20 UG, DAILY (1/D)
     Route: 058
     Dates: start: 20070530
  2. MONOTILDIEM [Concomitant]
     Dosage: 1 D/F, DAILY (1/D)
     Route: 048
  3. ELISOR [Concomitant]
     Dosage: 1 D/F, DAILY (1/D)
  4. NITRODERM [Concomitant]
     Dosage: 1 D/F, DAILY (1/D)
     Route: 062
  5. PREVISCAN [Concomitant]
     Dosage: 0.75 D/F, DAILY (1/D)
  6. SINGULAIR [Concomitant]
     Dosage: 1 D/F, DAILY (1/D)
  7. MIFLASONE [Concomitant]
     Dosage: 2 D/F, DAILY (1/D)
  8. SPIRIVA [Concomitant]
     Dosage: 1 D/F, DAILY (1/D)
     Route: 048

REACTIONS (2)
  - ATRIAL FIBRILLATION [None]
  - BLOOD PRESSURE INCREASED [None]
